FAERS Safety Report 6714578-6 (Version None)
Quarter: 2010Q2

REPORT INFORMATION
  Report Type: 
  Country: None (occurrence: None)
  Receive Date: 20100507
  Receipt Date: 20100428
  Transmission Date: 20101027
  Serious: Yes (Hospitalization, Other)
  Sender: FDA-Public Use
  Company Number: US-BIOGENIDEC-2010BI010132

PATIENT
  Age: 0 Day
  Sex: Male

DRUGS (3)
  1. TYSABRI [Suspect]
     Indication: DRUG EXPOSURE DURING PREGNANCY
     Route: 064
  2. ANTIBIOTICS NOS [Concomitant]
     Dates: start: 20100323
  3. FLUIDS NOS [Concomitant]
     Route: 042
     Dates: start: 20100323

REACTIONS (2)
  - PILONIDAL CYST CONGENITAL [None]
  - SMALL FOR DATES BABY [None]
